FAERS Safety Report 9803235 (Version 4)
Quarter: 2017Q4

REPORT INFORMATION
  Report Type: Report from Study
  Country: MX (occurrence: MX)
  Receive Date: 20140108
  Receipt Date: 20171207
  Transmission Date: 20180321
  Serious: Yes (Hospitalization, Other)
  Sender: FDA-Public Use
  Company Number: PHHY2011MX90306

PATIENT
  Age: 75 Year
  Sex: Female

DRUGS (16)
  1. MIFLONIDE [Suspect]
     Active Substance: BUDESONIDE
     Dosage: 2 DF, (2 DF DAILY)
     Route: 055
     Dates: start: 2010
  2. ADEL                               /01783701/ [Concomitant]
     Indication: PRODUCT USED FOR UNKNOWN INDICATION
     Dosage: 1 DF, DAILY
     Route: 048
  3. CAPTOPRIL. [Concomitant]
     Active Substance: CAPTOPRIL
     Indication: PRODUCT USED FOR UNKNOWN INDICATION
     Dosage: UNK UKN, UNK
     Route: 065
     Dates: start: 2008, end: 2008
  4. SPIRIVA [Concomitant]
     Active Substance: TIOTROPIUM BROMIDE MONOHYDRATE
     Indication: PRODUCT USED FOR UNKNOWN INDICATION
     Dosage: 1 UKN, UNK
     Route: 065
     Dates: start: 2011
  5. METOPROLOL. [Concomitant]
     Active Substance: METOPROLOL
     Indication: HYPERTENSION
     Dosage: 100 MG, UNK
     Route: 065
     Dates: start: 2009
  6. ADALAT [Concomitant]
     Active Substance: NIFEDIPINE
     Indication: PRODUCT USED FOR UNKNOWN INDICATION
     Dosage: 1 DF, QD
     Route: 065
     Dates: start: 200901
  7. MIFLONIDE [Suspect]
     Active Substance: BUDESONIDE
     Dosage: 4 DF (2 IN THE MORNING AND 2 AT NIGHT), QD
     Route: 055
  8. FORADIL [Suspect]
     Active Substance: FORMOTEROL FUMARATE
     Dosage: 2 DF, (1 MORNING + 1 NIGHT)
     Route: 055
     Dates: start: 201102
  9. COAPROVEL [Concomitant]
     Active Substance: HYDROCHLOROTHIAZIDE\IRBESARTAN
     Indication: HYPERTENSION
     Dosage: 150 MG, UNK
     Route: 065
     Dates: start: 2012
  10. FORADIL [Suspect]
     Active Substance: FORMOTEROL FUMARATE
     Indication: ASTHMA
     Dosage: 4 DF (2 IN THE MORNING AND 2 AT NIGHT), QD
     Route: 055
  11. MIFLONIDE [Suspect]
     Active Substance: BUDESONIDE
     Dosage: 3 DF, (3 TABLETS PER DAY)
     Route: 055
     Dates: start: 201012
  12. MIFLONIDE [Suspect]
     Active Substance: BUDESONIDE
     Dosage: 1 DF, (1 DF, EACH 12 HOURS)
     Route: 055
     Dates: start: 201102, end: 20131209
  13. FORADIL [Suspect]
     Active Substance: FORMOTEROL FUMARATE
     Dosage: UNK UNK, BID
     Route: 055
  14. LOPRESSOR [Concomitant]
     Active Substance: METOPROLOL TARTRATE
     Indication: PRODUCT USED FOR UNKNOWN INDICATION
     Dosage: UNK UKN, UNK
     Route: 065
     Dates: start: 201101
  15. NIFEDIPINO [Concomitant]
     Indication: HYPERTENSION
     Dosage: 1 DF, UNK
     Route: 065
     Dates: start: 2008, end: 2009
  16. MIFLONIDE [Suspect]
     Active Substance: BUDESONIDE
     Indication: ASTHMA
     Dosage: 4 DF (2 IN THE MORNING AND 2 AT NIGHT), QD
     Route: 055

REACTIONS (10)
  - Cyanosis [Recovered/Resolved]
  - Neck pain [Recovered/Resolved]
  - Feeling abnormal [Unknown]
  - Anger [Unknown]
  - Asthmatic crisis [Recovered/Resolved]
  - Obstructive airways disorder [Recovered/Resolved]
  - Bronchial disorder [Unknown]
  - Disease complication [Recovered/Resolved with Sequelae]
  - Dyspnoea [Not Recovered/Not Resolved]
  - Asthma [Unknown]

NARRATIVE: CASE EVENT DATE: 201109
